FAERS Safety Report 9047297 (Version 1)
Quarter: 2013Q1

REPORT INFORMATION
  Report Type: Report from Study
  Country: US (occurrence: US)
  Receive Date: 20130131
  Receipt Date: 20130131
  Transmission Date: 20140127
  Serious: No
  Sender: FDA-Public Use
  Company Number: US-ABBOTT-12P-163-0979848-00

PATIENT
  Age: 47 Year
  Sex: Female

DRUGS (2)
  1. HUMIRA [Suspect]
     Indication: CROHN^S DISEASE
     Dosage: LOADING DOSE
     Dates: start: 20120820, end: 20120820
  2. HUMIRA [Suspect]
     Dosage: LOADING DOSE
     Dates: start: 20120904

REACTIONS (7)
  - Weight increased [Not Recovered/Not Resolved]
  - Insomnia [Unknown]
  - Pollakiuria [Unknown]
  - Breast enlargement [Unknown]
  - Abdominal distension [Unknown]
  - Night sweats [Unknown]
  - Alopecia [Unknown]
